FAERS Safety Report 6724587-9 (Version None)
Quarter: 2010Q2

REPORT INFORMATION
  Report Type: 
  Country: None (occurrence: None)
  Receive Date: 20100513
  Receipt Date: 20100504
  Transmission Date: 20101027
  Serious: Yes (Hospitalization, Other)
  Sender: FDA-Public Use
  Company Number: PHHO2010US03936

PATIENT
  Sex: Male
  Weight: 77.098 kg

DRUGS (7)
  1. AFINITOR [Suspect]
     Indication: GLIOBLASTOMA MULTIFORME
     Dosage: 10MG/DAY
     Route: 048
     Dates: start: 20091231, end: 20100309
  2. AFINITOR [Suspect]
     Dosage: 10MG/DAY
     Route: 048
     Dates: start: 20100318
  3. AVASTIN [Suspect]
     Indication: GLIOBLASTOMA MULTIFORME
     Dosage: UNK
     Route: 042
     Dates: start: 20091015, end: 20100211
  4. TEMOZOLOMIDE [Suspect]
     Indication: GLIOBLASTOMA MULTIFORME
     Dosage: 160MG/DAY
     Route: 048
     Dates: start: 20091015, end: 20091125
  5. ANTICOAGULANTS [Suspect]
  6. COUMADIN [Concomitant]
  7. ELAVIL [Concomitant]

REACTIONS (10)
  - ANXIETY [None]
  - DEPRESSION [None]
  - EPISTAXIS [None]
  - GASTROINTESTINAL HAEMORRHAGE [None]
  - HAEMATEMESIS [None]
  - HAEMATOCHEZIA [None]
  - HYPOTENSION [None]
  - MELAENA [None]
  - PHARYNGEAL DISORDER [None]
  - TACHYCARDIA [None]
